FAERS Safety Report 4839251-0 (Version None)
Quarter: 2005Q4

REPORT INFORMATION
  Report Type: 
  Country: None (occurrence: None)
  Receive Date: 20051129
  Receipt Date: 20041005
  Transmission Date: 20060501
  Serious: No
  Sender: FDA-Public Use
  Company Number: 2004-02446

PATIENT
  Age: 27 Year
  Sex: Female
  Weight: 129.5 kg

DRUGS (12)
  1. WELLBUTRIN SR [Suspect]
     Dosage: 200MG IN THE MORNING
     Route: 048
     Dates: start: 20040401, end: 20040524
  2. CELEBREX [Concomitant]
     Indication: JUVENILE ARTHRITIS
     Route: 065
  3. NEXIUM [Concomitant]
     Route: 065
  4. POTASSIUM [Concomitant]
     Route: 065
  5. SINGULAIR [Concomitant]
     Route: 065
  6. ZYRTEC [Concomitant]
     Route: 065
  7. TOPAMAX [Concomitant]
     Route: 065
  8. CHROMIUM [Concomitant]
     Route: 065
  9. UNKNOWN MEDICATION [Concomitant]
     Route: 065
  10. ORTHO NOVUM 2/50 21 TAB [Concomitant]
     Route: 065
  11. PREMARIN [Concomitant]
     Route: 065
  12. ASTELIN [Concomitant]
     Route: 065

REACTIONS (6)
  - ABDOMINAL DISTENSION [None]
  - ABDOMINAL PAIN [None]
  - DIARRHOEA [None]
  - PHARMACEUTICAL PRODUCT COMPLAINT [None]
  - PYREXIA [None]
  - VOMITING [None]
